FAERS Safety Report 15431554 (Version 2)
Quarter: 2018Q4

REPORT INFORMATION
  Report Type: Spontaneous
  Country: US (occurrence: US)
  Receive Date: 20180926
  Receipt Date: 20181120
  Transmission Date: 20190204
  Serious: No
  Sender: FDA-Public Use
  Company Number: US-SA-2018SA266797

PATIENT
  Age: 79 Year
  Sex: Female

DRUGS (2)
  1. LANTUS [Suspect]
     Active Substance: INSULIN GLARGINE
     Dosage: 40 UNITS IN MORNING AND 20 UNITS IN EVENING
     Route: 065
  2. LANTUS [Suspect]
     Active Substance: INSULIN GLARGINE
     Indication: DIABETES MELLITUS
     Dosage: 45 UNITS IN MORNING AND 25 UNITS IN EVENING
     Route: 065

REACTIONS (3)
  - Device issue [Unknown]
  - Blood glucose decreased [Unknown]
  - Device leakage [Unknown]
